FAERS Safety Report 5068108-8 (Version None)
Quarter: 2006Q3

REPORT INFORMATION
  Report Type: 
  Country: None (occurrence: None)
  Receive Date: 20060731
  Receipt Date: 20060720
  Transmission Date: 20061208
  Serious: No
  Sender: FDA-Public Use
  Company Number: 06H-163-0309286-00

PATIENT
  Age: 47 Year
  Sex: Female

DRUGS (1)
  1. GENTAMICIN SULFATE/0.9% NACL INJ. 0.8MG/ML, 100ML FC (GENTAMICIN SULFA [Suspect]
     Indication: INFECTION PROPHYLAXIS
     Dates: start: 20060701

REACTIONS (5)
  - BLOOD PRESSURE DECREASED [None]
  - ERYTHEMA [None]
  - HEART RATE INCREASED [None]
  - HYPERSENSITIVITY [None]
  - POST PROCEDURAL COMPLICATION [None]
